FAERS Safety Report 4525122-6 (Version None)
Quarter: 2004Q4

REPORT INFORMATION
  Report Type: 
  Country: None (occurrence: None)
  Receive Date: 20041116
  Receipt Date: 20040728
  Transmission Date: 20050328
  Serious: Yes (Other)
  Sender: FDA-Public Use
  Company Number: S04-USA-04610-01

PATIENT
  Age: 93 Year
  Sex: Female

DRUGS (10)
  1. NAMENDA [Suspect]
     Indication: DEMENTIA ALZHEIMER'S TYPE
     Dosage: 10 MG QD PO
     Route: 048
     Dates: start: 20040201
  2. PAXIL [Concomitant]
  3. ARICEPT [Concomitant]
  4. HYDROCODONE [Concomitant]
  5. SPIRONOLACTONE [Concomitant]
  6. FUROSEMIDE [Concomitant]
  7. POTASSIUM [Concomitant]
  8. CLOTRIMAZOLE [Concomitant]
  9. VITAMIN B COMPLEX CAP [Concomitant]
  10. SALIVA SUBSTITUTE [Concomitant]

REACTIONS (5)
  - ABNORMAL BEHAVIOUR [None]
  - CRYING [None]
  - DEPRESSION [None]
  - EATING DISORDER [None]
  - SUICIDAL IDEATION [None]
